FAERS Safety Report 6204608-2 (Version None)
Quarter: 2009Q2

REPORT INFORMATION
  Report Type: 
  Country: None (occurrence: None)
  Receive Date: 20090527
  Receipt Date: 20090514
  Transmission Date: 20091009
  Serious: Yes (Other)
  Sender: FDA-Public Use
  Company Number: CH-PFIZER INC-2009213542

PATIENT
  Age: 79 Year

DRUGS (7)
  1. GABAPENTIN [Suspect]
     Indication: RESTLESSNESS
     Dosage: 300 MG, 3X/DAY
     Route: 048
     Dates: start: 20081221
  2. GABAPENTIN [Suspect]
     Indication: AGITATION
  3. REMERON [Suspect]
     Indication: RESTLESSNESS
     Dosage: 7.5 MG, 1X/DAY
     Route: 048
     Dates: start: 20090216, end: 20090316
  4. REMERON [Suspect]
     Indication: AGITATION
  5. SEROQUEL [Suspect]
     Indication: AGITATION
     Dosage: 6.25 MG, 3X/DAY
     Route: 048
     Dates: start: 20090201, end: 20090225
  6. ASPIRIN [Concomitant]
     Dosage: 100 MG, 1X/DAY
     Route: 048
  7. LAXOBERON [Concomitant]
     Dosage: 15 MG, 1X/DAY
     Route: 048
     Dates: start: 20090114

REACTIONS (1)
  - EXTRAPYRAMIDAL DISORDER [None]
